FAERS Safety Report 6792640-X (Version None)
Quarter: 2010Q2

REPORT INFORMATION
  Report Type: 
  Country: None (occurrence: None)
  Receive Date: 20100624
  Receipt Date: 20081024
  Transmission Date: 20101027
  Serious: Yes (Hospitalization, Other)
  Sender: FDA-Public Use
  Company Number: US-PFIZER INC-2008075319

PATIENT
  Sex: Male

DRUGS (12)
  1. SUTENT [Suspect]
     Indication: RENAL CELL CARCINOMA
     Dates: start: 20070801
  2. ZOLOFT [Concomitant]
  3. MEGACE [Concomitant]
  4. LORTAB [Concomitant]
  5. DIOVANE [Concomitant]
  6. OXYCONTIN [Concomitant]
  7. LASIX [Concomitant]
  8. COLACE [Concomitant]
  9. MULTIVITAMINS AND IRON [Concomitant]
  10. K-DUR [Concomitant]
  11. TUSSIN DM [Concomitant]
  12. MS CONTIN [Concomitant]

REACTIONS (2)
  - INCORRECT DOSE ADMINISTERED [None]
  - PNEUMONIA [None]
